FAERS Safety Report 7720605-X (Version None)
Quarter: 2011Q3

REPORT INFORMATION
  Report Type: 
  Country: None (occurrence: None)
  Receive Date: 20110831
  Receipt Date: 20110817
  Transmission Date: 20111222
  Serious: Yes (Hospitalization)
  Sender: FDA-Public Use
  Company Number: US-ELI_LILLY_AND_COMPANY-US201108006422

PATIENT
  Sex: Female

DRUGS (4)
  1. FORTEO [Suspect]
     Dosage: 20 UG, QD
     Route: 065
  2. FORTEO [Suspect]
     Indication: OSTEOPOROSIS
     Dosage: 20 UG, QD
     Route: 065
     Dates: start: 20110730
  3. PROTOZOL                           /00012501/ [Concomitant]
  4. PREDNISONE [Concomitant]
     Indication: ARTERITIS

REACTIONS (3)
  - VERTEBROPLASTY [None]
  - INCORRECT DOSE ADMINISTERED BY DEVICE [None]
  - PAIN [None]
